FAERS Safety Report 14247453 (Version 1)
Quarter: 2017Q4

REPORT INFORMATION
  Report Type: Spontaneous
  Country: US (occurrence: US)
  Receive Date: 20171204
  Receipt Date: 20171204
  Transmission Date: 20180321
  Serious: Yes (Other)
  Sender: FDA-Public Use
  Company Number: US-LPDUSPRD-20171625

PATIENT
  Age: 51 Year
  Sex: Female

DRUGS (1)
  1. INJECTAFER [Suspect]
     Active Substance: FERRIC CARBOXYMALTOSE
     Dosage: 750 MG
     Route: 042
     Dates: start: 20171120, end: 20171120

REACTIONS (3)
  - Dyspnoea [Unknown]
  - Cough [Unknown]
  - Chest discomfort [Unknown]

NARRATIVE: CASE EVENT DATE: 20171120
